FAERS Safety Report 4474381-7 (Version None)
Quarter: 2004Q4

REPORT INFORMATION
  Report Type: 
  Country: None (occurrence: None)
  Receive Date: 20041014
  Receipt Date: 20041005
  Transmission Date: 20050328
  Serious: Yes (Other)
  Sender: FDA-Public Use
  Company Number: US-JNJFOC-20041001902

PATIENT
  Age: 53 Year
  Sex: Female

DRUGS (5)
  1. DURAGESIC [Suspect]
     Route: 062
     Dates: start: 20040929
  2. DIAVAN [Concomitant]
     Indication: HYPERTENSION
     Route: 049
  3. PROZAC [Concomitant]
     Indication: DEPRESSION
     Route: 049
  4. PERCOCET [Concomitant]
     Route: 049
  5. PERCOCET [Concomitant]
     Indication: PAIN
     Route: 049

REACTIONS (3)
  - HEADACHE [None]
  - HYPERTENSION [None]
  - SEDATION [None]
